FAERS Safety Report 21346576 (Version 1)
Quarter: 2022Q3

REPORT INFORMATION
  Report Type: Report from Study
  Country: GB (occurrence: GB)
  Receive Date: 20220917
  Receipt Date: 20220917
  Transmission Date: 20221026
  Serious: Yes (Other)
  Sender: FDA-Public Use
  Company Number: GB-ROCHE-3173712

PATIENT
  Age: 83 Year
  Sex: Female
  Weight: 66.75 kg

DRUGS (12)
  1. CARBOPLATIN [Suspect]
     Active Substance: CARBOPLATIN
     Indication: Small cell lung cancer extensive stage
     Dosage: UNIT DOSE : 300 MG,THERAPY END DATE : NOT ASKED
     Route: 065
     Dates: start: 20220718
  2. ETOPOSIDE [Suspect]
     Active Substance: ETOPOSIDE
     Indication: Small cell lung cancer extensive stage
     Dosage: UNIT DOSE : 132  MG,THERAPY END DATE : NOT ASKED
     Route: 042
     Dates: start: 20220718
  3. ATEZOLIZUMAB [Suspect]
     Active Substance: ATEZOLIZUMAB
     Indication: Small cell lung cancer extensive stage
     Dosage: UNIT DOSE : 1200 MG, THERAPY END DATE : NOT ASKED
     Route: 041
     Dates: start: 20220624
  4. ETOPOSIDE [Suspect]
     Active Substance: ETOPOSIDE
     Indication: Small cell lung cancer extensive stage
     Dosage: 600 MG
     Route: 048
     Dates: start: 20220718
  5. AMLODIPINE [Concomitant]
     Active Substance: AMLODIPINE BESYLATE
     Indication: Product used for unknown indication
     Route: 065
     Dates: end: 20220801
  6. POLYETHYLENE GLYCOL 3350\POTASSIUM CHLORIDE\SODIUM BICARBONATE\SODIUM [Concomitant]
     Active Substance: POLYETHYLENE GLYCOL 3350\POTASSIUM CHLORIDE\SODIUM BICARBONATE\SODIUM CHLORIDE
     Indication: Product used for unknown indication
     Dosage: FREQUENCY : 1 , FREQUENCY TIME : 3 DAYS
     Route: 065
  7. LORAZEPAM [Concomitant]
     Active Substance: LORAZEPAM
     Indication: Product used for unknown indication
     Dosage: FREQUENCY : 1 , FREQUENCY TIME : 1 AS REQUIRED
     Route: 065
     Dates: start: 20220714
  8. OMEPRAZOLE [Concomitant]
     Active Substance: OMEPRAZOLE
     Indication: Product used for unknown indication
     Dosage: FREQUENCY : 1 , FREQUENCY TIME : 1 DAYS
     Route: 065
     Dates: end: 20220801
  9. ONDANSETRON [Concomitant]
     Active Substance: ONDANSETRON
     Indication: Product used for unknown indication
     Dosage: UNIT DOSE : 8 MG, THERAPY DURATION : 1 DAYS
     Route: 065
     Dates: start: 20220718, end: 20220718
  10. MORPHINE SULFATE [Concomitant]
     Active Substance: MORPHINE SULFATE
     Indication: Product used for unknown indication
     Dosage: FREQUENCY : 1 , FREQUENCY TIME : 1 AS REQUIRED
     Route: 065
     Dates: start: 20220714
  11. SENOKOT [Concomitant]
     Active Substance: SENNOSIDES
     Indication: Product used for unknown indication
     Route: 065
     Dates: start: 202206
  12. THYROXINE [Concomitant]
     Active Substance: LEVOTHYROXINE
     Indication: Product used for unknown indication
     Dosage: FREQUENCY : 1 , FREQUENCY TIME : 1 DAYS
     Route: 065
     Dates: start: 2004

REACTIONS (3)
  - Cellulitis [Not Recovered/Not Resolved]
  - Peripheral swelling [Not Recovered/Not Resolved]
  - Constipation [Recovered/Resolved]

NARRATIVE: CASE EVENT DATE: 20220806
